FAERS Safety Report 25788970 (Version 1)
Quarter: 2025Q3

REPORT INFORMATION
  Report Type: Report from Study
  Country: US (occurrence: US)
  Receive Date: 20250911
  Receipt Date: 20250911
  Transmission Date: 20251020
  Serious: Yes (Hospitalization, Other)
  Sender: TAKEDA
  Company Number: US-TAKEDA-2025TUS070757AA

PATIENT
  Sex: Male

DRUGS (14)
  1. FRUQUINTINIB [Suspect]
     Active Substance: FRUQUINTINIB
     Indication: Colon cancer
     Dosage: 3 MILLIGRAM, QD
     Dates: start: 20250621, end: 20250730
  2. FRUQUINTINIB [Suspect]
     Active Substance: FRUQUINTINIB
     Dosage: 3 MILLIGRAM, QD
  3. AMOXICILLIN\CLAVULANATE POTASSIUM [Concomitant]
     Active Substance: AMOXICILLIN\CLAVULANATE POTASSIUM
  4. BACLOFEN [Concomitant]
     Active Substance: BACLOFEN
  5. DEXAMETHASONE [Concomitant]
     Active Substance: DEXAMETHASONE
  6. DUTASTERIDE\TAMSULOSIN HYDROCHLORIDE [Concomitant]
     Active Substance: DUTASTERIDE\TAMSULOSIN HYDROCHLORIDE
  7. FLUCONAZOLE [Concomitant]
     Active Substance: FLUCONAZOLE
  8. HYDROMORPHONE HCL [Concomitant]
     Active Substance: HYDROMORPHONE HYDROCHLORIDE
  9. LEVETIRACETAM [Concomitant]
     Active Substance: LEVETIRACETAM
  10. LIDOCAINE HYDROCHLORIDE [Concomitant]
     Active Substance: LIDOCAINE HYDROCHLORIDE
  11. METHADONE HYDROCHLORIDE [Concomitant]
     Active Substance: METHADONE HYDROCHLORIDE
  12. ONDANSETRON HYDROCHLORIDE [Concomitant]
     Active Substance: ONDANSETRON HYDROCHLORIDE
  13. PREGABALIN [Concomitant]
     Active Substance: PREGABALIN
  14. XARELTO [Concomitant]
     Active Substance: RIVAROXABAN

REACTIONS (3)
  - Arterial haemorrhage [Not Recovered/Not Resolved]
  - Scrotal gangrene [Not Recovered/Not Resolved]
  - Scrotal infection [Not Recovered/Not Resolved]
